FAERS Safety Report 10369856 (Version 6)
Quarter: 2015Q1

REPORT INFORMATION
  Report Type: Report from Study
  Country: DE (occurrence: DE)
  Receive Date: 20140808
  Receipt Date: 20150317
  Transmission Date: 20150720
  Serious: Yes (Hospitalization)
  Sender: FDA-Public Use
  Company Number: DE-ABBVIE-14K-062-1268476-00

PATIENT
  Age: 46 Year
  Sex: Female
  Weight: 70 kg

DRUGS (9)
  1. MTX [Suspect]
     Active Substance: METHOTREXATE SODIUM
     Dosage: 1-0-0
     Route: 048
     Dates: start: 201407, end: 201408
  2. HUMIRA [Suspect]
     Active Substance: ADALIMUMAB
     Route: 058
     Dates: start: 20140419, end: 20140825
  3. MTX [Suspect]
     Active Substance: METHOTREXATE SODIUM
     Route: 048
     Dates: start: 20091005, end: 20131005
  4. CELEBREX [Concomitant]
     Active Substance: CELECOXIB
     Indication: RHEUMATOID ARTHRITIS
     Dosage: 0-0-1
  5. FOLIC ACID. [Concomitant]
     Active Substance: FOLIC ACID
     Indication: PRODUCT USED FOR UNKNOWN INDICATION
  6. LANSOPRAZOL [Concomitant]
     Active Substance: LANSOPRAZOLE
     Indication: PRODUCT USED FOR UNKNOWN INDICATION
     Dosage: 1-0-0
  7. MTX [Suspect]
     Active Substance: METHOTREXATE SODIUM
     Indication: RHEUMATOID ARTHRITIS
     Route: 048
  8. HUMIRA [Suspect]
     Active Substance: ADALIMUMAB
     Indication: RHEUMATOID ARTHRITIS
     Route: 058
     Dates: start: 20120419, end: 20130811
  9. PREDNISOLON [Suspect]
     Active Substance: PREDNISOLONE
     Indication: RHEUMATOID ARTHRITIS
     Dosage: 1-0-0
     Route: 048
     Dates: start: 20140729

REACTIONS (25)
  - Seroma [Recovered/Resolved with Sequelae]
  - Post procedural infection [Unknown]
  - Blood potassium increased [Unknown]
  - Red blood cell count increased [Unknown]
  - Pain in extremity [Unknown]
  - Post procedural fistula [Recovered/Resolved with Sequelae]
  - Sinus bradycardia [Not Recovered/Not Resolved]
  - C-reactive protein increased [Unknown]
  - Mean cell volume increased [Unknown]
  - Peripheral swelling [Unknown]
  - Coagulation factor XIII level increased [Unknown]
  - Pain in extremity [Unknown]
  - Deep vein thrombosis [Recovered/Resolved]
  - Scoliosis [Unknown]
  - Mean platelet volume decreased [Unknown]
  - Joint range of motion decreased [Unknown]
  - Bronchitis [Unknown]
  - Activated partial thromboplastin time prolonged [Unknown]
  - Blood creatine phosphokinase MB increased [Unknown]
  - Haemoglobin decreased [Unknown]
  - Impaired healing [Unknown]
  - Post procedural discharge [Unknown]
  - Homans^ sign positive [Unknown]
  - Synovial cyst [Recovered/Resolved]
  - Fibrin D dimer increased [Unknown]

NARRATIVE: CASE EVENT DATE: 201307
